FAERS Safety Report 7920038-7 (Version None)
Quarter: 2011Q4

REPORT INFORMATION
  Report Type: 
  Country: None (occurrence: None)
  Receive Date: 20111115
  Receipt Date: 20111013
  Transmission Date: 20120403
  Serious: Yes (Other)
  Sender: FDA-Public Use
  Company Number: 1000025452

PATIENT
  Age: 36 Year
  Sex: Female

DRUGS (3)
  1. ESCITALOPRAM [Suspect]
     Dosage: ORAL
     Route: 048
  2. ZOLOFT [Suspect]
  3. ZIPREXA (OLANZAPINE) [Concomitant]

REACTIONS (5)
  - RESPIRATORY DISORDER [None]
  - CONVULSION [None]
  - TACHYCARDIA [None]
  - HYPERTONIA [None]
  - HYPERVIGILANCE [None]
